FAERS Safety Report 7892276-3 (Version None)
Quarter: 2011Q4

REPORT INFORMATION
  Report Type: 
  Country: None (occurrence: None)
  Receive Date: 20111104
  Receipt Date: 20111027
  Transmission Date: 20120403
  Serious: Yes (Hospitalization)
  Sender: FDA-Public Use
  Company Number: US-BIOGENIDEC-2011BI039222

PATIENT
  Age: 55 Year
  Sex: Female

DRUGS (4)
  1. TYSABRI [Suspect]
     Indication: MULTIPLE SCLEROSIS
     Route: 042
     Dates: start: 20100730, end: 20111001
  2. BACLOFEN [Concomitant]
     Indication: MUSCLE RELAXANT THERAPY
  3. VICODIN [Concomitant]
     Indication: PAIN
  4. NEURONTIN [Concomitant]
     Indication: PAIN

REACTIONS (1)
  - MULTIPLE SCLEROSIS RELAPSE [None]
